FAERS Safety Report 8546197-3 (Version None)
Quarter: 2012Q3

REPORT INFORMATION
  Report Type: 
  Country: None (occurrence: None)
  Receive Date: 20120727
  Receipt Date: 20120725
  Transmission Date: 20120928
  Serious: Yes (Other)
  Sender: FDA-Public Use
  Company Number: PHHY2012PL050684

PATIENT
  Age: 30 Year
  Sex: Female

DRUGS (9)
  1. BROMOCRIPTINE MESYLATE [Interacting]
     Dosage: 15 MG, DAILY
  2. CABERGOLINE [Suspect]
     Dosage: 2 MG, TWICE WEEKLY
  3. CABERGOLINE [Suspect]
     Dosage: 0.25 MG, TWICE WEEKLY
  4. BROMOCRIPTINE MESYLATE [Interacting]
     Dosage: 7.5 MG, DAILY
  5. OXCARBAZEPINE [Interacting]
     Indication: CONVULSION
     Dosage: 600 MG DAILY
  6. OXCARBAZEPINE [Interacting]
     Dosage: 1200 MG DAILY
  7. BROMOCRIPTINE MESYLATE [Interacting]
     Dosage: 20 MG, DAILY
  8. QUINAGOLIDE [Concomitant]
     Dosage: 150 UG, DAILY
  9. QUINAGOLIDE [Concomitant]
     Dosage: 75 UG, DAILY

REACTIONS (5)
  - NEOPLASM PROGRESSION [None]
  - MENSTRUAL DISORDER [None]
  - PROLACTINOMA [None]
  - DRUG INTERACTION [None]
  - GALACTORRHOEA [None]
